FAERS Safety Report 12459086 (Version 1)
Quarter: 2016Q2

REPORT INFORMATION
  Report Type: Spontaneous
  Country: JP (occurrence: JP)
  Receive Date: 20160613
  Receipt Date: 20160613
  Transmission Date: 20160815
  Serious: Yes (Hospitalization, Other)
  Sender: FDA-Public Use
  Company Number: JP-ELI_LILLY_AND_COMPANY-JP201606002056

PATIENT
  Age: 54 Year
  Sex: Male

DRUGS (6)
  1. VEGETAMIN B [Concomitant]
     Active Substance: CHLORPROMAZINE HYDROCHLORIDE\PHENOBARBITAL\PROMETHAZINE
     Dosage: 1 DF, QD
     Route: 048
  2. IMIPRAMINE [Concomitant]
     Active Substance: IMIPRAMINE
     Dosage: 25 MG, QD
     Route: 048
  3. SODIUM VALPROATE [Concomitant]
     Active Substance: VALPROATE SODIUM
     Dosage: 200 MG, TID
     Route: 048
  4. HALOPERIDOL. [Concomitant]
     Active Substance: HALOPERIDOL
     Dosage: 4.5 MG, TID
     Route: 042
  5. ZYPREXA [Suspect]
     Active Substance: OLANZAPINE
     Indication: PRODUCT USED FOR UNKNOWN INDICATION
     Dosage: 5 MG, TID
     Route: 048
  6. FLUNITRAZEPAM [Concomitant]
     Active Substance: FLUNITRAZEPAM
     Dosage: 4 MG, QD
     Route: 048

REACTIONS (3)
  - Pneumonia aspiration [Recovered/Resolved]
  - Catatonia [Recovered/Resolved]
  - Therapy cessation [Unknown]
